FAERS Safety Report 7150659-3 (Version None)
Quarter: 2010Q4

REPORT INFORMATION
  Report Type: 
  Country: None (occurrence: None)
  Receive Date: 20101210
  Receipt Date: 20101203
  Transmission Date: 20110411
  Serious: Yes (Hospitalization)
  Sender: FDA-Public Use
  Company Number: JP-JNJFOC-20101103131

PATIENT
  Sex: Female

DRUGS (13)
  1. TOPIRAMATE [Suspect]
     Indication: EPILEPSY
     Route: 048
  2. ALEVIATIN [Concomitant]
     Route: 048
  3. DIAZEPAM [Concomitant]
     Route: 065
  4. MAGMITT [Concomitant]
     Route: 048
  5. ALOSENN [Concomitant]
     Route: 048
  6. GASMOTIN [Concomitant]
     Route: 048
  7. PARIET [Concomitant]
     Route: 048
  8. LUPRAC [Concomitant]
     Route: 048
  9. WARFARIN SODIUM [Concomitant]
     Route: 048
  10. CELECOXIB [Concomitant]
     Route: 048
  11. ALFAROL [Concomitant]
     Route: 048
  12. BONOTEO [Concomitant]
     Route: 048
  13. CEFTRIAXONE SODIUM [Concomitant]
     Route: 065

REACTIONS (1)
  - HEPATIC FUNCTION ABNORMAL [None]
